FAERS Safety Report 24177230 (Version 1)
Quarter: 2024Q3

REPORT INFORMATION
  Report Type: Other
  Country: US (occurrence: US)
  Receive Date: 20240806
  Receipt Date: 20240806
  Transmission Date: 20241017
  Serious: Yes (Other)
  Sender: BIONPHARMA
  Company Number: US-Bion-013586

PATIENT
  Age: 10 Year
  Sex: Female

DRUGS (1)
  1. DEXAMETHASONE [Suspect]
     Active Substance: DEXAMETHASONE
     Indication: Eye inflammation
     Dosage: 2MM ALIQUOT OF INTRACAMERAL INJECTION OF DEXAMETHASONE SUSPENSION 9%

REACTIONS (1)
  - Iris atrophy [Not Recovered/Not Resolved]
